FAERS Safety Report 12058586 (Version 1)
Quarter: 2016Q1

REPORT INFORMATION
  Report Type: Spontaneous
  Country: US (occurrence: None)
  Receive Date: 20160209
  Receipt Date: 20160209
  Transmission Date: 20160526
  Serious: Yes (Hospitalization)
  Sender: FDA-Public Use
  Company Number: None

PATIENT
  Sex: Female
  Weight: 56.7 kg

DRUGS (1)
  1. CLINDAMYCIN 150 ML [Suspect]
     Active Substance: CLINDAMYCIN PHOSPHATE
     Indication: ACNE
     Route: 048
     Dates: start: 20151120, end: 20151124

REACTIONS (2)
  - Clostridium difficile infection [None]
  - Product quality issue [None]

NARRATIVE: CASE EVENT DATE: 20151225
